FAERS Safety Report 21071354 (Version 3)
Quarter: 2023Q1

REPORT INFORMATION
  Report Type: Spontaneous
  Country: US (occurrence: US)
  Receive Date: 20220712
  Receipt Date: 20230104
  Transmission Date: 20230417
  Serious: Yes (Life-Threatening, Other)
  Sender: FDA-Public Use
  Company Number: US-AMERICAN REGENT INC-2022001891

PATIENT
  Sex: Female
  Weight: 89.161 kg

DRUGS (7)
  1. FERRIC CARBOXYMALTOSE [Suspect]
     Active Substance: FERRIC CARBOXYMALTOSE
     Indication: Iron deficiency anaemia
     Dosage: UNK, SINGLE
     Route: 042
     Dates: start: 202006, end: 202006
  2. FERRIC CARBOXYMALTOSE [Suspect]
     Active Substance: FERRIC CARBOXYMALTOSE
     Indication: Anaemia
  3. NAPROXEN [Concomitant]
     Active Substance: NAPROXEN
     Indication: Muscle spasms
     Dosage: 500 MILLIGRAM, BID
     Route: 048
     Dates: start: 20200612
  4. FLUCONAZOLE [Concomitant]
     Active Substance: FLUCONAZOLE
     Indication: Fungal infection
     Dosage: 150 MILLIGRAM, QD
     Route: 048
     Dates: start: 20200325
  5. MUPIROCIN [Concomitant]
     Active Substance: MUPIROCIN
     Indication: Localised infection
     Dosage: 2 PERCENT APPLY A SMALL AMOUNT TO THE AFFECTED AREA BY TOPICAL ROUTE 3 TIMES PER DAY
     Route: 061
     Dates: start: 20200325
  6. ROPINIROLE [Concomitant]
     Active Substance: ROPINIROLE
     Indication: Restless legs syndrome
     Dosage: 1 MILLIGRAM, BID
     Route: 048
     Dates: start: 20200615
  7. ELIQUIS [Concomitant]
     Active Substance: APIXABAN
     Indication: Thrombosis prophylaxis
     Dosage: 5 MILLIGRAM, BID
     Route: 048
     Dates: start: 20200325

REACTIONS (6)
  - Muscle spasms [Unknown]
  - Pain [Unknown]
  - Gait disturbance [Unknown]
  - Asthenia [Unknown]
  - Hypophosphataemia [Recovered/Resolved]
  - Back pain [Unknown]

NARRATIVE: CASE EVENT DATE: 20200101
